FAERS Safety Report 8418109-4 (Version None)
Quarter: 2012Q2

REPORT INFORMATION
  Report Type: 
  Country: None (occurrence: None)
  Receive Date: 20120607
  Receipt Date: 20120601
  Transmission Date: 20120825
  Serious: Yes (Hospitalization)
  Sender: FDA-Public Use
  Company Number: GB-SANOFI-AVENTIS-2012SA033516

PATIENT

DRUGS (3)
  1. LANTUS [Suspect]
     Dosage: STRENGTH: 300IU/3ML
     Route: 065
  2. LANTUS [Suspect]
     Dosage: STRENGTH: 300IU/3ML
     Route: 065
  3. AUTOPEN 24 [Suspect]
     Indication: DEVICE THERAPY

REACTIONS (2)
  - DRUG ADMINISTRATION ERROR [None]
  - DIABETIC KETOACIDOSIS [None]
